FAERS Safety Report 13793039 (Version 1)
Quarter: 2017Q3

REPORT INFORMATION
  Report Type: Other
  Country: ES (occurrence: ES)
  Receive Date: 20170726
  Receipt Date: 20170726
  Transmission Date: 20171127
  Serious: Yes (Life-Threatening)
  Sender: FDA-Public Use
  Company Number: ES-ASTELLAS-2017US029639

PATIENT
  Age: 76 Year
  Sex: Male

DRUGS (1)
  1. XTANDI [Suspect]
     Active Substance: ENZALUTAMIDE
     Indication: PROSTATE CANCER METASTATIC
     Route: 048
     Dates: start: 20170705

REACTIONS (1)
  - Atrioventricular block complete [Recovering/Resolving]

NARRATIVE: CASE EVENT DATE: 20170713
